FAERS Safety Report 5911838-3 (Version None)
Quarter: 2008Q4

REPORT INFORMATION
  Report Type: 
  Country: None (occurrence: None)
  Receive Date: 20081006
  Receipt Date: 20080924
  Transmission Date: 20090506
  Serious: Yes (Other)
  Sender: FDA-Public Use
  Company Number: 2008AL010927

PATIENT
  Age: 63 Year
  Sex: Female

DRUGS (8)
  1. FEVERALL [Suspect]
     Indication: PAIN
     Dosage: ; X1; PO
     Route: 048
  2. LISINOPRIL [Concomitant]
  3. LEVOTHYROXINE SODIUM [Concomitant]
  4. FUROSEMIDE [Concomitant]
  5. AVANDAMET [Concomitant]
  6. MORPHINE SULFATE INJ [Concomitant]
  7. SIMVASTATIN [Concomitant]
  8. ACETYLSALICYLIC ACID SRT [Concomitant]

REACTIONS (1)
  - SOMNOLENCE [None]
